FAERS Safety Report 10012200 (Version 2)
Quarter: 2014Q2

REPORT INFORMATION
  Report Type: Spontaneous
  Country: FR (occurrence: FR)
  Receive Date: 20140314
  Receipt Date: 20140409
  Transmission Date: 20141212
  Serious: Yes (Hospitalization)
  Sender: FDA-Public Use
  Company Number: FR-GLAXOSMITHKLINE-B0976950A

PATIENT
  Age: 68 Year
  Sex: Male

DRUGS (2)
  1. ALKERAN [Suspect]
     Indication: PRODUCT USED FOR UNKNOWN INDICATION
     Dosage: 80MG PER DAY
     Route: 051
     Dates: start: 20130704, end: 20130704
  2. BEROMUN [Suspect]
     Indication: PRODUCT USED FOR UNKNOWN INDICATION
     Route: 051
     Dates: start: 20130704, end: 20130704

REACTIONS (1)
  - Chronic myeloid leukaemia [Unknown]
